FAERS Safety Report 8122411-3 (Version None)
Quarter: 2012Q1

REPORT INFORMATION
  Report Type: 
  Country: None (occurrence: None)
  Receive Date: 20120208
  Receipt Date: 20120201
  Transmission Date: 20120608
  Serious: Yes (Hospitalization)
  Sender: FDA-Public Use
  Company Number: ES-GLAXOSMITHKLINE-B0777691A

PATIENT
  Sex: Female

DRUGS (2)
  1. PROMACTA [Suspect]
     Indication: IDIOPATHIC THROMBOCYTOPENIC PURPURA
     Route: 048
     Dates: start: 20111111, end: 20120112
  2. ATENOLOL [Concomitant]
     Indication: HYPERTENSION
     Route: 065

REACTIONS (8)
  - VOMITING [None]
  - ARTERIOSCLEROSIS [None]
  - NAUSEA [None]
  - RENAL EMBOLISM [None]
  - ABDOMINAL PAIN [None]
  - RENAL ARTERY THROMBOSIS [None]
  - AORTIC THROMBOSIS [None]
  - DIARRHOEA [None]
